FAERS Safety Report 6811856-7 (Version None)
Quarter: 2010Q3

REPORT INFORMATION
  Report Type: 
  Country: None (occurrence: None)
  Receive Date: 20100701
  Receipt Date: 20100625
  Transmission Date: 20110219
  Serious: Yes (Hospitalization)
  Sender: FDA-Public Use
  Company Number: PHHY2010US41821

PATIENT
  Sex: Female

DRUGS (1)
  1. FANAPT [Suspect]
     Dosage: TITRATION DOSE OF 6 MG

REACTIONS (1)
  - TREMOR [None]
